FAERS Safety Report 9290311 (Version 1)
Quarter: 2013Q2

REPORT INFORMATION
  Report Type: Spontaneous
  Country: US (occurrence: None)
  Receive Date: 20130514
  Receipt Date: 20130514
  Transmission Date: 20140414
  Serious: Yes (Disabling)
  Sender: FDA-Public Use
  Company Number: None

PATIENT
  Age: 62 Year
  Sex: Female
  Weight: 90.72 kg

DRUGS (1)
  1. CRESTOR [Suspect]
     Indication: BLOOD CHOLESTEROL
     Dosage: 1 TABLET NIGHTLY
     Dates: start: 20130314, end: 20130414

REACTIONS (4)
  - Myalgia [None]
  - Muscle strain [None]
  - Screaming [None]
  - Suicidal ideation [None]
